FAERS Safety Report 4498994-1 (Version None)
Quarter: 2004Q4

REPORT INFORMATION
  Report Type: 
  Country: None (occurrence: None)
  Receive Date: 20041108
  Receipt Date: 20041026
  Transmission Date: 20050328
  Serious: Yes (Death)
  Sender: FDA-Public Use
  Company Number: 2004239329NO

PATIENT
  Age: 75 Year
  Sex: Male

DRUGS (13)
  1. ZYVOX [Suspect]
     Indication: POSTOPERATIVE INFECTION
     Dates: start: 20040806
  2. PARACET [Concomitant]
  3. SODIUM [Concomitant]
  4. AFIPRAN [Concomitant]
  5. BUMETANIDE [Concomitant]
  6. ZOFRAN [Concomitant]
  7. IMODIUM [Concomitant]
  8. LIPITOR [Concomitant]
  9. BRONKYL [Concomitant]
  10. IMOVANE [Concomitant]
  11. ALBYL-E [Concomitant]
  12. SELO-ZOK (METOPROLOL SUCCINATE) [Concomitant]
  13. RAMIPRIL [Concomitant]

REACTIONS (2)
  - ACUTE MYOCARDIAL INFARCTION [None]
  - PANCYTOPENIA [None]
